FAERS Safety Report 5696195-2 (Version None)
Quarter: 2008Q2

REPORT INFORMATION
  Report Type: 
  Country: None (occurrence: None)
  Receive Date: 20080403
  Receipt Date: 20080403
  Transmission Date: 20081010
  Serious: No
  Sender: FDA-Public Use
  Company Number: None

PATIENT
  Age: 5 Year
  Sex: Female
  Weight: 18.1439 kg

DRUGS (1)
  1. SINGULAIR [Suspect]

REACTIONS (8)
  - CONDITION AGGRAVATED [None]
  - CONVERSION DISORDER [None]
  - CRYING [None]
  - FEAR [None]
  - HALLUCINATION [None]
  - NIGHTMARE [None]
  - SCREAMING [None]
  - SLEEP TERROR [None]
